FAERS Safety Report 7718531-5 (Version None)
Quarter: 2011Q3

REPORT INFORMATION
  Report Type: 
  Country: None (occurrence: None)
  Receive Date: 20110830
  Receipt Date: 20110826
  Transmission Date: 20111222
  Serious: Yes (Death, Other)
  Sender: FDA-Public Use
  Company Number: GB-SANOFI-AVENTIS-2011SA053388

PATIENT
  Age: 75 Year
  Sex: Male

DRUGS (3)
  1. CLOPIDOGREL BISULFATE [Suspect]
     Indication: ACUTE CORONARY SYNDROME
     Route: 065
  2. FONDAPARINUX SODIUM [Suspect]
     Indication: ACUTE CORONARY SYNDROME
     Route: 058
  3. ASPIRIN [Suspect]
     Indication: ACUTE CORONARY SYNDROME
     Route: 065

REACTIONS (8)
  - CIRCULATORY COLLAPSE [None]
  - VISUAL IMPAIRMENT [None]
  - DYSARTHRIA [None]
  - VIITH NERVE PARALYSIS [None]
  - ISCHAEMIC STROKE [None]
  - DRUG INEFFECTIVE [None]
  - CEREBRAL HAEMORRHAGE [None]
  - MUSCULAR WEAKNESS [None]
